FAERS Safety Report 22607644 (Version 1)
Quarter: 2023Q2

REPORT INFORMATION
  Report Type: Other
  Country: US (occurrence: None)
  Receive Date: 20230616
  Receipt Date: 20230616
  Transmission Date: 20230722
  Serious: Yes (Death)
  Sender: FDA-Public Use
  Company Number: US-ROCHE-3369445

PATIENT
  Age: 42 Year
  Sex: Female

DRUGS (15)
  1. DORNASE ALFA [Suspect]
     Active Substance: DORNASE ALFA
     Indication: Cystic fibrosis
     Route: 065
  2. DORNASE ALFA [Suspect]
     Active Substance: DORNASE ALFA
     Indication: Bronchiectasis
  3. SODIUM CHLORIDE [Suspect]
     Active Substance: SODIUM CHLORIDE
     Indication: Cystic fibrosis
     Route: 065
  4. SODIUM CHLORIDE [Suspect]
     Active Substance: SODIUM CHLORIDE
     Indication: Bronchiectasis
  5. OXYGEN [Concomitant]
     Active Substance: OXYGEN
  6. VANCOMYCIN [Concomitant]
     Active Substance: VANCOMYCIN
  7. CEFEPIME [Concomitant]
     Active Substance: CEFEPIME HYDROCHLORIDE
  8. ISONIAZID [Concomitant]
     Active Substance: ISONIAZID
  9. RIFAMPIN [Concomitant]
     Active Substance: RIFAMPIN
  10. PYRAZINAMIDE [Concomitant]
     Active Substance: PYRAZINAMIDE
  11. ETHAMBUTOL [Concomitant]
     Active Substance: ETHAMBUTOL HYDROCHLORIDE
  12. AMIKACIN [Concomitant]
     Active Substance: AMIKACIN
  13. IMIPENEM [Concomitant]
     Active Substance: IMIPENEM
  14. LINEZOLID [Concomitant]
     Active Substance: LINEZOLID
  15. AZITHROMYCIN [Concomitant]
     Active Substance: AZITHROMYCIN

REACTIONS (1)
  - Disease progression [Fatal]
